FAERS Safety Report 19765558 (Version 1)
Quarter: 2021Q3

REPORT INFORMATION
  Report Type: Spontaneous
  Country: US (occurrence: US)
  Receive Date: 20210830
  Receipt Date: 20210830
  Transmission Date: 20211014
  Serious: No
  Sender: FDA-Public Use
  Company Number: US-ASTRAZENECA-2021A681610

PATIENT
  Sex: Male
  Weight: 81.6 kg

DRUGS (2)
  1. GLUCOPHAGE [Concomitant]
     Active Substance: METFORMIN HYDROCHLORIDE
  2. BYETTA [Suspect]
     Active Substance: EXENATIDE
     Indication: TYPE 2 DIABETES MELLITUS
     Route: 058
     Dates: start: 20210726

REACTIONS (6)
  - Abdominal distension [Unknown]
  - Decreased appetite [Recovered/Resolved]
  - Device use issue [Unknown]
  - Drug ineffective [Unknown]
  - Hunger [Unknown]
  - Device leakage [Unknown]
